FAERS Safety Report 4682583-X (Version None)
Quarter: 2005Q2

REPORT INFORMATION
  Report Type: 
  Country: None (occurrence: None)
  Receive Date: 20050606
  Receipt Date: 20050510
  Transmission Date: 20051028
  Serious: Yes (Hospitalization, Disabling)
  Sender: FDA-Public Use
  Company Number: US-MERCK-0505USA01358

PATIENT
  Age: 57 Year
  Sex: Male
  Weight: 82 kg

DRUGS (2)
  1. VIOXX [Suspect]
     Indication: ARTHRITIS
     Route: 048
     Dates: start: 20010701, end: 20041001
  2. ASPIRIN [Concomitant]
     Route: 048
     Dates: start: 19990101

REACTIONS (10)
  - ANKLE FRACTURE [None]
  - ATHEROSCLEROSIS [None]
  - COGNITIVE DISORDER [None]
  - DEPRESSION [None]
  - EMOTIONAL DISTRESS [None]
  - GASTROOESOPHAGEAL REFLUX DISEASE [None]
  - LOWER LIMB FRACTURE [None]
  - MEMORY IMPAIRMENT [None]
  - MYOCARDIAL INFARCTION [None]
  - ULCER HAEMORRHAGE [None]
